FAERS Safety Report 18824330 (Version 1)
Quarter: 2021Q1

REPORT INFORMATION
  Report Type: Report from Study
  Country: DE (occurrence: DE)
  Receive Date: 20210202
  Receipt Date: 20210202
  Transmission Date: 20210419
  Serious: Yes (Hospitalization, Other)
  Sender: FDA-Public Use
  Company Number: DE-TAKEDA-2021TUS005625

PATIENT
  Age: 9 Year
  Sex: Male
  Weight: 33 kg

DRUGS (1)
  1. IDURSULFASE [Suspect]
     Active Substance: IDURSULFASE
     Indication: MUCOPOLYSACCHARIDOSIS II
     Dosage: 12 MILLIGRAM, 1/WEEK
     Route: 042
     Dates: start: 20210118, end: 20210118

REACTIONS (1)
  - Tooth extraction [Recovering/Resolving]

NARRATIVE: CASE EVENT DATE: 20210125
